FAERS Safety Report 12192068 (Version 1)
Quarter: 2016Q1

REPORT INFORMATION
  Report Type: Spontaneous
  Country: US (occurrence: US)
  Receive Date: 20160318
  Receipt Date: 20160318
  Transmission Date: 20160526
  Serious: Yes (Hospitalization)
  Sender: FDA-Public Use
  Company Number: US-JNJCP-30000328000

PATIENT
  Sex: Female
  Weight: 64 kg

DRUGS (6)
  1. NEUTROGENA HYDRO BOOST GEL-CREAM EYE [Suspect]
     Active Substance: COSMETICS
     Indication: PRODUCT USED FOR UNKNOWN INDICATION
     Route: 061
  2. NEUTROGENA AGELESS INTENSIVES DEEP WRINKLE MOISTURE NIGHT [Suspect]
     Active Substance: COSMETICS
     Indication: PRODUCT USED FOR UNKNOWN INDICATION
     Route: 061
  3. VITAMIN D [Concomitant]
     Active Substance: CHOLECALCIFEROL
     Indication: ROUTINE HEALTH MAINTENANCE
     Dosage: 1000 MG SINCE A MONTH
  4. NEUTROGENA HYDRO BOOST WATER GEL [Suspect]
     Active Substance: COSMETICS
     Indication: PRODUCT USED FOR UNKNOWN INDICATION
     Route: 061
  5. VITAMIN C [Concomitant]
     Active Substance: ASCORBIC ACID
     Indication: ROUTINE HEALTH MAINTENANCE
     Dosage: 1000 MG SINCE A MONTH
  6. NEUTROGENA AGELESS INTENSIVES ANTI WRINKLE DEEP WRINKLE DAILY MOISTUR SUNS SPF20 [Suspect]
     Active Substance: AVOBENZONE\HOMOSALATE\OCTISALATE\OCTOCRYLENE\OXYBENZONE
     Indication: PRODUCT USED FOR UNKNOWN INDICATION
     Route: 061

REACTIONS (3)
  - Somnolence [Unknown]
  - Application site discolouration [Unknown]
  - Application site swelling [Unknown]
